FAERS Safety Report 12499041 (Version 8)
Quarter: 2016Q4

REPORT INFORMATION
  Report Type: Report from Study
  Country: KR (occurrence: KR)
  Receive Date: 20160627
  Receipt Date: 20161230
  Transmission Date: 20170207
  Serious: Yes (Hospitalization)
  Sender: FDA-Public Use
  Company Number: KR-ROCHE-1777284

PATIENT
  Age: 59 Year
  Sex: Female
  Weight: 73.2 kg

DRUGS (11)
  1. ENTECAVIR. [Concomitant]
     Active Substance: ENTECAVIR
     Route: 048
     Dates: start: 20160322
  2. CHLORPHENIRAMINE MALEATE. [Concomitant]
     Active Substance: CHLORPHENIRAMINE MALEATE
     Indication: PREMEDICATION
     Route: 042
     Dates: start: 20160314
  3. FAMOTIDINE. [Concomitant]
     Active Substance: FAMOTIDINE
     Indication: PREMEDICATION
     Route: 042
     Dates: start: 20160314
  4. DOXYCYCLINE. [Concomitant]
     Active Substance: DOXYCYCLINE
     Indication: RASH
     Route: 048
     Dates: start: 20160511
  5. ONDANSETRON [Concomitant]
     Active Substance: ONDANSETRON
     Indication: PREMEDICATION
     Route: 042
     Dates: start: 20160314
  6. MACPERAN [Concomitant]
     Active Substance: METOCLOPRAMIDE HYDROCHLORIDE
     Indication: NAUSEA
     Route: 048
     Dates: start: 20160315
  7. PACLITAXEL. [Suspect]
     Active Substance: PACLITAXEL
     Indication: BREAST CANCER METASTATIC
     Dosage: ON DAY 1, DAY 8, AND DAY 15 OF EACH 28 DAY CYCLE. DATE OF MOST RECENT DOSE (118 MG) WAS ON 01/JUN/20
     Route: 042
     Dates: start: 20160314
  8. COBIMETINIB [Suspect]
     Active Substance: COBIMETINIB
     Indication: BREAST CANCER METASTATIC
     Dosage: ON DAY 3 THROUGH DAY 23 OF EACH 28 DAY TREATMENT CYCLE. DATE OF MOST RECENT DOSE OF ATEZOLIZUMAB PRI
     Route: 048
     Dates: start: 20160316
  9. FAMOTIDINE. [Concomitant]
     Active Substance: FAMOTIDINE
     Indication: DYSPEPSIA
     Route: 048
     Dates: start: 20160810, end: 20160831
  10. FAMOTIDINE. [Concomitant]
     Active Substance: FAMOTIDINE
     Indication: URINARY TRACT INFECTION
  11. DEXAMETHASONE. [Concomitant]
     Active Substance: DEXAMETHASONE
     Indication: PREMEDICATION
     Route: 042
     Dates: start: 20160314

REACTIONS (3)
  - Urinary tract infection [Recovered/Resolved]
  - Urinary tract infection [Recovered/Resolved]
  - Pyelonephritis acute [Recovered/Resolved]

NARRATIVE: CASE EVENT DATE: 20160613
